FAERS Safety Report 20249832 (Version 1)
Quarter: 2021Q4

REPORT INFORMATION
  Report Type: Spontaneous
  Country: DE (occurrence: DE)
  Receive Date: 20211229
  Receipt Date: 20211229
  Transmission Date: 20220303
  Serious: Yes (Hospitalization, Other)
  Sender: FDA-Public Use
  Company Number: DE-ADRED-07661-01

PATIENT
  Age: 58 Year
  Sex: Male

DRUGS (16)
  1. DULOXETINE [Suspect]
     Active Substance: DULOXETINE
     Dosage: 120 MILLIGRAM DAILY; 1-1-0-0
  2. ESOMEPRAZOLE [Concomitant]
     Active Substance: ESOMEPRAZOLE
     Dosage: 2 DOSAGE FORMS DAILY; 20 MG, 2-0-0-0
  3. AMLODIPINE BESYLATE [Concomitant]
     Active Substance: AMLODIPINE BESYLATE
     Dosage: 10 MILLIGRAM DAILY; 1-0-1-0
  4. NALOXONE HYDROCHLORIDE\TILIDINE HYDROCHLORIDE [Concomitant]
     Active Substance: NALOXONE HYDROCHLORIDE\TILIDINE HYDROCHLORIDE
     Dosage: 50 | 4 MG, AS REQUIRED
  5. Macrogol / Potassium Chloride / Sodium Carbonate / Sodium Chloride [Concomitant]
     Dosage: 1 DOSAGE FORMS DAILY; 1-0-0-0
  6. VITAMIN D [Concomitant]
     Active Substance: VITAMIN D NOS
     Dosage: 20000 IU, SCHEME
  7. VENLAFAXINE HYDROCHLORIDE [Concomitant]
     Active Substance: VENLAFAXINE HYDROCHLORIDE
     Dosage: 150 MILLIGRAM DAILY; 1-0-0-0
  8. METOCLOPRAMIDE [Concomitant]
     Active Substance: METOCLOPRAMIDE
     Dosage: 20 DROPS, AS REQUIRED
  9. METAMIZOL [Concomitant]
     Active Substance: METAMIZOLE SODIUM
     Dosage: 30 DROPS, AS REQUIRED
  10. RAMIPRIL [Concomitant]
     Active Substance: RAMIPRIL
     Dosage: 10 MILLIGRAM DAILY; 1-0-1-0
  11. CARBAMAZEPINE [Concomitant]
     Active Substance: CARBAMAZEPINE
     Dosage: 300 MILLIGRAM DAILY; 0-0-1-0
  12. MIRTAZAPINE [Concomitant]
     Active Substance: MIRTAZAPINE
     Dosage: 30 MILLIGRAM DAILY; 0-0-1-0
  13. BUPRENORPHINE [Concomitant]
     Active Substance: BUPRENORPHINE
     Dosage: 20 UG, SCHEME
     Route: 062
  14. BISACODYL [Concomitant]
     Active Substance: BISACODYL
     Dosage: REQUIREMENT
  15. LOPERAMIDE [Concomitant]
     Active Substance: LOPERAMIDE
     Dosage: REQUIREMENT
  16. LEVETIRACETAM [Concomitant]
     Active Substance: LEVETIRACETAM
     Dosage: 2000 MILLIGRAM DAILY; 1-0-1-0

REACTIONS (6)
  - Paresis [Unknown]
  - General physical health deterioration [Unknown]
  - Pain [Unknown]
  - Haematemesis [Unknown]
  - Tachycardia [Unknown]
  - Nausea [Unknown]
